FAERS Safety Report 8517282-7 (Version None)
Quarter: 2012Q3

REPORT INFORMATION
  Report Type: 
  Country: None (occurrence: None)
  Receive Date: 20120718
  Receipt Date: 20120713
  Transmission Date: 20120928
  Serious: Yes (Hospitalization, Other)
  Sender: FDA-Public Use
  Company Number: JP-009507513-1207JPN005096

PATIENT

DRUGS (3)
  1. METFORMIN HCL [Suspect]
     Indication: DIABETES MELLITUS MANAGEMENT
     Route: 048
     Dates: start: 20111101
  2. LANTUS [Suspect]
     Indication: DIABETES MELLITUS MANAGEMENT
     Dosage: DAILY DOSAGE UNKNOWN
     Route: 042
     Dates: start: 20111101, end: 20111101
  3. JANUVIA [Suspect]
     Indication: DIABETES MELLITUS
     Route: 048
     Dates: start: 20111123, end: 20120712

REACTIONS (1)
  - CERVIX CARCINOMA [None]
